FAERS Safety Report 17210342 (Version 1)
Quarter: 2019Q4

REPORT INFORMATION
  Report Type: Spontaneous
  Country: DE (occurrence: DE)
  Receive Date: 20191227
  Receipt Date: 20191227
  Transmission Date: 20200122
  Serious: Yes (Other)
  Sender: FDA-Public Use
  Company Number: DE-GLAXOSMITHKLINE-DE2019GSK228864

PATIENT
  Age: 64 Year
  Sex: Female

DRUGS (6)
  1. PREDNISOLONE. [Suspect]
     Active Substance: PREDNISOLONE
     Indication: EOSINOPHILIC CELLULITIS
     Dosage: 100 MG, QD
     Route: 048
  2. PREDNISOLONE. [Suspect]
     Active Substance: PREDNISOLONE
     Dosage: 75 MG, QD
     Route: 048
  3. MEPOLIZUMAB [Suspect]
     Active Substance: MEPOLIZUMAB
     Indication: ASTHMA
     Dosage: UNK
     Dates: end: 201803
  4. FOLATE [Concomitant]
     Active Substance: FOLATE SODIUM
     Indication: PRODUCT USED FOR UNKNOWN INDICATION
     Dosage: 5 MG
  5. PANTOPRAZOLE [Concomitant]
     Active Substance: PANTOPRAZOLE
     Indication: PRODUCT USED FOR UNKNOWN INDICATION
     Dosage: 20 MG, QD
  6. METHOTREXATE. [Concomitant]
     Active Substance: METHOTREXATE
     Indication: EOSINOPHILIC FASCIITIS
     Dosage: 15 MG, WE

REACTIONS (19)
  - Toxicity to various agents [Unknown]
  - Induration [Unknown]
  - Septal panniculitis [Unknown]
  - Pain in extremity [Unknown]
  - Eosinophilia [Unknown]
  - Morphoea [Unknown]
  - Nasal obstruction [Unknown]
  - Bone pain [Unknown]
  - Peau d^orange [Unknown]
  - Pulmonary fibrosis [Unknown]
  - Emphysema [Unknown]
  - Myalgia [Unknown]
  - Soft tissue disorder [Unknown]
  - Eosinophilic cellulitis [Unknown]
  - Therapy non-responder [Unknown]
  - Eosinophilic fasciitis [Unknown]
  - Livedo reticularis [Unknown]
  - Skin lesion [Unknown]
  - Hepatic steatosis [Unknown]
